FAERS Safety Report 7152567-0 (Version None)
Quarter: 2010Q4

REPORT INFORMATION
  Report Type: 
  Country: None (occurrence: None)
  Receive Date: 20101213
  Receipt Date: 20101209
  Transmission Date: 20110411
  Serious: Yes (Death)
  Sender: FDA-Public Use
  Company Number: NL-SANOFI-AVENTIS-2010SA074449

PATIENT

DRUGS (3)
  1. OXALIPLATIN [Suspect]
     Route: 041
  2. AVASTIN [Suspect]
     Route: 041
  3. XELODA [Suspect]
     Route: 048

REACTIONS (1)
  - DEATH [None]
